FAERS Safety Report 18519990 (Version 1)
Quarter: 2020Q4

REPORT INFORMATION
  Report Type: Spontaneous
  Country: US (occurrence: US)
  Receive Date: 20201118
  Receipt Date: 20201118
  Transmission Date: 20210114
  Serious: No
  Sender: FDA-Public Use
  Company Number: US-AMGEN-USASP2020184952

PATIENT
  Age: 81 Year
  Sex: Female

DRUGS (3)
  1. OTEZLA [Suspect]
     Active Substance: APREMILAST
     Dosage: UNK (HALF DOSE)
     Route: 048
     Dates: start: 202010, end: 202011
  2. OTEZLA [Suspect]
     Active Substance: APREMILAST
     Dosage: 30 MILLIGRAM, BID
     Route: 048
     Dates: start: 202011
  3. OTEZLA [Suspect]
     Active Substance: APREMILAST
     Indication: MULTIPLE SCLEROSIS
     Dosage: 30 MILLIGRAM, BID
     Route: 048
     Dates: start: 20190828, end: 202010

REACTIONS (2)
  - Off label use [Unknown]
  - Anxiety [Not Recovered/Not Resolved]

NARRATIVE: CASE EVENT DATE: 20190828
